FAERS Safety Report 8371301-X (Version None)
Quarter: 2012Q2

REPORT INFORMATION
  Report Type: 
  Country: None (occurrence: None)
  Receive Date: 20120518
  Receipt Date: 20120509
  Transmission Date: 20120825
  Serious: Yes (Hospitalization)
  Sender: FDA-Public Use
  Company Number: FR-ASTRAZENECA-2012SE30857

PATIENT
  Age: 94 Year
  Sex: Female
  Weight: 37 kg

DRUGS (1)
  1. CARBOCAINE [Suspect]
     Indication: NERVE BLOCK
     Route: 065

REACTIONS (4)
  - BRADYCARDIA [None]
  - HYPERTENSION [None]
  - OVERDOSE [None]
  - NAUSEA [None]
